FAERS Safety Report 21003824 (Version 1)
Quarter: 2022Q2

REPORT INFORMATION
  Report Type: Spontaneous
  Country: US (occurrence: US)
  Receive Date: 20220624
  Receipt Date: 20220624
  Transmission Date: 20220721
  Serious: Yes (Other)
  Sender: FDA-Public Use
  Company Number: US-Hikma Pharmaceuticals USA Inc.-US-H14001-22-01586

PATIENT
  Sex: Male

DRUGS (1)
  1. FLUTICASONE [Suspect]
     Active Substance: FLUTICASONE
     Indication: Multiple allergies
     Dosage: UNKNOWN
     Route: 065

REACTIONS (6)
  - Blepharitis [Unknown]
  - Blindness [Unknown]
  - Visual impairment [Unknown]
  - Glaucoma [Unknown]
  - Dry eye [Unknown]
  - Off label use [Unknown]
